FAERS Safety Report 17475834 (Version 4)
Quarter: 2020Q2

REPORT INFORMATION
  Report Type: Spontaneous
  Country: US (occurrence: US)
  Receive Date: 20200228
  Receipt Date: 20200605
  Transmission Date: 20200713
  Serious: Yes (Other)
  Sender: FDA-Public Use
  Company Number: US-PFIZER INC-2020086636

PATIENT
  Age: 66 Year
  Sex: Female

DRUGS (3)
  1. XELJANZ XR [Suspect]
     Active Substance: TOFACITINIB CITRATE
     Dosage: 11 MG, DAILY
     Route: 048
     Dates: start: 202002
  2. XELJANZ XR [Suspect]
     Active Substance: TOFACITINIB CITRATE
     Indication: RHEUMATOID ARTHRITIS
     Dosage: 11 MG, DAILY
     Route: 048
     Dates: start: 202001, end: 202002
  3. PREDNISONE. [Concomitant]
     Active Substance: PREDNISONE
     Dosage: ON TAPERING DOSE DOWN TO THE 5 MG
     Dates: start: 2007

REACTIONS (6)
  - Frustration tolerance decreased [Unknown]
  - Condition aggravated [Unknown]
  - Low cardiac output syndrome [Not Recovered/Not Resolved]
  - Peripheral swelling [Unknown]
  - Depressed mood [Unknown]
  - Dyspnoea [Unknown]

NARRATIVE: CASE EVENT DATE: 2020
